FAERS Safety Report 6891787-7 (Version None)
Quarter: 2010Q3

REPORT INFORMATION
  Report Type: 
  Country: None (occurrence: None)
  Receive Date: 20100731
  Receipt Date: 20071214
  Transmission Date: 20110219
  Serious: No
  Sender: FDA-Public Use
  Company Number: US-PFIZER INC-2007085025

PATIENT
  Sex: Female
  Weight: 81.65 kg

DRUGS (2)
  1. AMLODIPINE [Suspect]
     Indication: HYPERTENSION
  2. VITAMINS [Concomitant]

REACTIONS (1)
  - PRODUCT QUALITY ISSUE [None]
